FAERS Safety Report 9867012 (Version 1)
Quarter: 2014Q1

REPORT INFORMATION
  Report Type: Spontaneous
  Country: US (occurrence: None)
  Receive Date: 20140203
  Receipt Date: 20140203
  Transmission Date: 20141002
  Serious: No
  Sender: FDA-Public Use
  Company Number: None

PATIENT
  Age: 41 Year
  Sex: Male
  Weight: 90.72 kg

DRUGS (1)
  1. ASTHMANEFRIN [Suspect]
     Indication: ASTHMA
     Dates: start: 20121025, end: 20131220

REACTIONS (1)
  - Haemoptysis [None]
